FAERS Safety Report 19802576 (Version 1)
Quarter: 2021Q3

REPORT INFORMATION
  Report Type: Spontaneous
  Country: US (occurrence: US)
  Receive Date: 20210908
  Receipt Date: 20210908
  Transmission Date: 20211014
  Serious: Yes (Other)
  Sender: FDA-Public Use
  Company Number: None

PATIENT
  Age: 50 Year
  Sex: Female
  Weight: 49.5 kg

DRUGS (4)
  1. CREST PRO?HEALTH CLINICAL [Suspect]
     Active Substance: CETYLPYRIDINIUM CHLORIDE
     Indication: GINGIVITIS
     Route: 048
     Dates: start: 20210906, end: 20210907
  2. VITAMIN B12 [Concomitant]
     Active Substance: CYANOCOBALAMIN
  3. CREST PRO?HEALTH CLINICAL [Suspect]
     Active Substance: CETYLPYRIDINIUM CHLORIDE
     Indication: BREATH ODOUR
     Route: 048
     Dates: start: 20210906, end: 20210907
  4. VITAMIN D [Concomitant]
     Active Substance: VITAMIN D NOS

REACTIONS (3)
  - Dysgeusia [None]
  - Paraesthesia [None]
  - Tongue discomfort [None]

NARRATIVE: CASE EVENT DATE: 20210906
